FAERS Safety Report 5472668-2 (Version None)
Quarter: 2007Q4

REPORT INFORMATION
  Report Type: 
  Country: None (occurrence: None)
  Receive Date: 20071001
  Receipt Date: 20070521
  Transmission Date: 20080405
  Serious: No
  Sender: FDA-Public Use
  Company Number: US-ASTRAZENECA-2006UW17548

PATIENT
  Age: 76 Year
  Sex: Female
  Weight: 86.2 kg

DRUGS (6)
  1. ARIMIDEX [Suspect]
     Indication: BREAST CANCER FEMALE
     Route: 048
     Dates: start: 20060401
  2. HYDROCHLOROTHIAZIDE [Concomitant]
     Route: 048
  3. ATENOLOL [Concomitant]
     Route: 048
  4. CALCIUM W/VITAMIN D [Concomitant]
     Route: 048
  5. LOVASTATIN [Concomitant]
  6. ASPIRIN [Concomitant]

REACTIONS (5)
  - ARTHRALGIA [None]
  - COUGH [None]
  - JOINT LOCK [None]
  - JOINT STIFFNESS [None]
  - PARAESTHESIA [None]
